FAERS Safety Report 20646627 (Version 1)
Quarter: 2022Q1

REPORT INFORMATION
  Report Type: Spontaneous
  Country: US (occurrence: US)
  Receive Date: 20220329
  Receipt Date: 20220329
  Transmission Date: 20220423
  Serious: Yes (Other)
  Sender: FDA-Public Use
  Company Number: US-BRISTOL-MYERS SQUIBB COMPANY-2022-010986

PATIENT
  Sex: Female

DRUGS (1)
  1. POMALYST [Suspect]
     Active Substance: POMALIDOMIDE
     Indication: Plasma cell myeloma
     Dosage: DAILY FOR 2 WEEKS ON, THEN 1 WEEK OFF.
     Route: 048
     Dates: start: 202201, end: 20220309

REACTIONS (5)
  - Seizure [Unknown]
  - Pyrexia [Unknown]
  - Pneumonitis [Unknown]
  - Dyspnoea [Unknown]
  - Cough [Unknown]
